FAERS Safety Report 14861760 (Version 6)
Quarter: 2019Q1

REPORT INFORMATION
  Report Type: Report from Study
  Country: DE (occurrence: DE)
  Receive Date: 20180508
  Receipt Date: 20190110
  Transmission Date: 20190417
  Serious: Yes (Hospitalization, Other)
  Sender: FDA-Public Use
  Company Number: PHHY2018DE076988

PATIENT
  Age: 44 Year
  Sex: Male
  Weight: 120 kg

DRUGS (11)
  1. BISOPROLOL [Concomitant]
     Active Substance: BISOPROLOL
     Indication: CARDIAC FAILURE CHRONIC
     Dosage: 10 OT, UNK
     Route: 065
     Dates: start: 2007
  2. TORASEMIDE [Concomitant]
     Active Substance: TORSEMIDE
     Indication: RENAL FAILURE
  3. HUMALOG [Concomitant]
     Active Substance: INSULIN LISPRO
     Indication: DIABETES MELLITUS
     Dosage: UNK
     Route: 065
  4. PHENPROCOUMON [Suspect]
     Active Substance: PHENPROCOUMON
     Indication: ATRIAL FIBRILLATION
     Dosage: 1/2-1 DF, QD
     Route: 065
     Dates: start: 20130116
  5. TORASEMIDE [Concomitant]
     Active Substance: TORSEMIDE
     Indication: CARDIAC FAILURE
     Dosage: 100 OT, UNK
     Route: 048
     Dates: start: 20180513
  6. SPIRONOLACTONE. [Concomitant]
     Active Substance: SPIRONOLACTONE
     Indication: RENAL FAILURE
  7. JARDIANCE [Concomitant]
     Active Substance: EMPAGLIFLOZIN
     Indication: DIABETES MELLITUS
     Dosage: 25 OT, UNK
     Route: 065
  8. ENTRESTO [Suspect]
     Active Substance: SACUBITRIL\VALSARTAN
     Dosage: 200 MG (93 SACUBITRIL/ 103 VALSARTAN), BID
     Route: 048
     Dates: start: 20180424, end: 20180512
  9. RAMIPRIL. [Concomitant]
     Active Substance: RAMIPRIL
     Indication: CARDIAC FAILURE
     Dosage: 2.5 OT, UNK
     Route: 048
     Dates: start: 20180516
  10. SPIRONOLACTONE. [Concomitant]
     Active Substance: SPIRONOLACTONE
     Indication: CARDIAC FAILURE
     Dosage: 50 OT, UNK
     Route: 048
     Dates: start: 20180513
  11. ENTRESTO [Suspect]
     Active Substance: SACUBITRIL\VALSARTAN
     Indication: CARDIAC FAILURE CHRONIC
     Dosage: 200 MG (93 SACUBITRIL/ 103 VALSARTAN), BID
     Route: 048
     Dates: start: 20170516, end: 20180405

REACTIONS (14)
  - Syncope [Recovered/Resolved]
  - Sepsis [Recovered/Resolved]
  - Diabetic foot [Recovered/Resolved]
  - Cerebrovascular accident [Recovered/Resolved]
  - Glomerular filtration rate decreased [Recovering/Resolving]
  - Dizziness [Recovering/Resolving]
  - Glomerular filtration rate increased [Not Recovered/Not Resolved]
  - Vomiting [Recovered/Resolved]
  - Erysipelas [Recovered/Resolved]
  - Pneumonia [Recovered/Resolved]
  - Inflammation of wound [Recovering/Resolving]
  - Renal impairment [Recovering/Resolving]
  - Drug hypersensitivity [Recovered/Resolved]
  - Diarrhoea [Recovered/Resolved]

NARRATIVE: CASE EVENT DATE: 20180313
